FAERS Safety Report 12853465 (Version 3)
Quarter: 2017Q1

REPORT INFORMATION
  Report Type: Spontaneous
  Country: FR (occurrence: FR)
  Receive Date: 20161017
  Receipt Date: 20170116
  Transmission Date: 20170428
  Serious: Yes (Other)
  Sender: FDA-Public Use
  Company Number: FR-009507513-1610FRA005713

PATIENT
  Age: 23 Year
  Sex: Male

DRUGS (3)
  1. THERAPY UNSPECIFIED [Suspect]
     Active Substance: UNSPECIFIED INGREDIENT
  2. IPILIMUMAB [Concomitant]
     Active Substance: IPILIMUMAB
     Indication: METASTATIC MALIGNANT MELANOMA
     Dosage: UNK, CYCLICAL, 17 CYCLES OF IMMUNOTHERAPY ASSOCIATING IPILIMUMAB AND PEMBROLIZUMAB
  3. NIVOLUMAB [Suspect]
     Active Substance: NIVOLUMAB
     Indication: METASTATIC MALIGNANT MELANOMA
     Dosage: UNK, CYCLICAL, 17 CYCLES OF IMMUNOTHERAPY ASSOCIATING IPILIMUMAB AND PEMBROLIZUMAB

REACTIONS (1)
  - Fulminant type 1 diabetes mellitus [Unknown]
